FAERS Safety Report 5140744-X (Version None)
Quarter: 2006Q4

REPORT INFORMATION
  Report Type: 
  Country: None (occurrence: None)
  Receive Date: 20061025
  Receipt Date: 20061012
  Transmission Date: 20070319
  Serious: Yes (Hospitalization, Disabling)
  Sender: FDA-Public Use
  Company Number: DE-2006-028341

PATIENT
  Age: 53 Year
  Sex: Male
  Weight: 60 kg

DRUGS (2)
  1. ULTRAVIST 300 [Suspect]
     Indication: SPINAL MYELOGRAM
     Dosage: 2 ML, 1 DOSE, INTRATHECAL
     Route: 037
     Dates: start: 20060920, end: 20060920
  2. MORPHINE [Concomitant]

REACTIONS (3)
  - PARAPARESIS [None]
  - POST PROCEDURAL COMPLICATION [None]
  - SENSATION OF HEAVINESS [None]
